FAERS Safety Report 5297644-4 (Version None)
Quarter: 2007Q2

REPORT INFORMATION
  Report Type: 
  Country: None (occurrence: None)
  Receive Date: 20070416
  Receipt Date: 20070405
  Transmission Date: 20071010
  Serious: Yes (Other)
  Sender: FDA-Public Use
  Company Number: 2007SE01257

PATIENT
  Age: 28 Year
  Sex: Male

DRUGS (2)
  1. ZOMIG [Suspect]
     Indication: MIGRAINE
     Route: 048
     Dates: start: 20050101
  2. ZOMIG [Suspect]
     Route: 048
     Dates: start: 20050101

REACTIONS (1)
  - EMBOLISM [None]
